FAERS Safety Report 15510109 (Version 1)
Quarter: 2018Q4

REPORT INFORMATION
  Report Type: Spontaneous
  Country: US (occurrence: US)
  Receive Date: 20181017
  Receipt Date: 20181017
  Transmission Date: 20190205
  Serious: Yes (Other)
  Sender: FDA-Public Use
  Company Number: None

PATIENT
  Age: 63 Year
  Sex: Female
  Weight: 76 kg

DRUGS (10)
  1. ACETAMINOPHEN. [Concomitant]
     Active Substance: ACETAMINOPHEN
  2. MELOXICAM. [Concomitant]
     Active Substance: MELOXICAM
  3. ALBUTEROL. [Concomitant]
     Active Substance: ALBUTEROL
  4. DULOXETINE. [Concomitant]
     Active Substance: DULOXETINE
  5. CHOLECALCIFEROL [Concomitant]
     Active Substance: CHOLECALCIFEROL
  6. TRAMADOL. [Concomitant]
     Active Substance: TRAMADOL
  7. WARFARIN [Concomitant]
     Active Substance: WARFARIN
  8. MELATONIN [Concomitant]
     Active Substance: MELATONIN
  9. EPCLUSA [Suspect]
     Active Substance: SOFOSBUVIR\VELPATASVIR
     Indication: HEPATITIS C
     Route: 048
     Dates: start: 20180105, end: 20180312
  10. ATORVASTATIN [Concomitant]
     Active Substance: ATORVASTATIN

REACTIONS (1)
  - Anaemia [None]

NARRATIVE: CASE EVENT DATE: 20180201
